FAERS Safety Report 11922594 (Version 2)
Quarter: 2016Q4

REPORT INFORMATION
  Report Type: Report from Study
  Country: US (occurrence: US)
  Receive Date: 20160115
  Receipt Date: 20161208
  Transmission Date: 20170206
  Serious: Yes (Hospitalization)
  Sender: FDA-Public Use
  Company Number: US-VERTEX PHARMACEUTICALS-2015-003189

PATIENT
  Sex: Male

DRUGS (16)
  1. HYPERSAL [Concomitant]
     Route: 055
  2. PROZAC [Interacting]
     Active Substance: FLUOXETINE HYDROCHLORIDE
     Indication: DEPRESSION
     Route: 065
  3. CAYSTON [Concomitant]
     Active Substance: AZTREONAM
  4. FLUOXETINE [Concomitant]
     Active Substance: FLUOXETINE HYDROCHLORIDE
     Dosage: 20 MG, QD
  5. LORADIN [Concomitant]
     Dosage: UNK, PRN
  6. VITAMIN D [Concomitant]
     Active Substance: CHOLECALCIFEROL
  7. DULERA [Concomitant]
     Active Substance: FORMOTEROL FUMARATE DIHYDRATE\MOMETASONE FUROATE
  8. ZENPEP [Concomitant]
     Active Substance: PANCRELIPASE AMYLASE\PANCRELIPASE LIPASE\PANCRELIPASE PROTEASE
     Dosage: 20000 IU, UNK
  9. TRAZODONE [Interacting]
     Active Substance: TRAZODONE HYDROCHLORIDE
     Indication: DEPRESSION
     Route: 065
  10. ALBUTEROL. [Concomitant]
     Active Substance: ALBUTEROL
     Route: 055
  11. AZITHROM [Concomitant]
     Dosage: 500 MG, UNK
  12. PULMOZYME [Concomitant]
     Active Substance: DORNASE ALFA
  13. ORKAMBI [Suspect]
     Active Substance: IVACAFTOR\LUMACAFTOR
     Indication: CYSTIC FIBROSIS
     Dosage: UNK
     Route: 048
     Dates: start: 20150825, end: 20151228
  14. AQUADEKS [Concomitant]
     Active Substance: MINERALS\VITAMINS
  15. CALCIUM [Concomitant]
     Active Substance: CALCIUM
     Dosage: 500 MG, BID
  16. RISPERDAL [Concomitant]
     Active Substance: RISPERIDONE

REACTIONS (12)
  - Chills [Recovered/Resolved]
  - Respiratory distress [Unknown]
  - Respiration abnormal [Recovered/Resolved]
  - Hospitalisation [Unknown]
  - Diarrhoea [Not Recovered/Not Resolved]
  - Headache [Recovered/Resolved]
  - Cough [Unknown]
  - Hyperhidrosis [Unknown]
  - Productive cough [Unknown]
  - Depression [Unknown]
  - Drug interaction [Unknown]
  - Nausea [Recovered/Resolved]

NARRATIVE: CASE EVENT DATE: 2015
